FAERS Safety Report 5526051-1 (Version None)
Quarter: 2007Q4

REPORT INFORMATION
  Report Type: 
  Country: None (occurrence: None)
  Receive Date: 20071126
  Receipt Date: 20071120
  Transmission Date: 20080405
  Serious: Yes (Other)
  Sender: FDA-Public Use
  Company Number: US-GENENTECH-250072

PATIENT
  Sex: Female
  Weight: 63.492 kg

DRUGS (3)
  1. RITUXAN [Suspect]
     Indication: WALDENSTROM'S MACROGLOBULINAEMIA
     Dosage: UNK UNK, 1/WEEK
     Route: 042
     Dates: start: 20040701, end: 20060201
  2. RITUXAN [Suspect]
     Dosage: UNK, UNKNOWN
     Route: 065
     Dates: start: 20060401
  3. CHEMOTHERAPY (UNK INGREDIENTS) [Concomitant]
     Indication: CHEMOTHERAPY
     Dosage: UNK UNK, UNKNOWN
     Route: 065

REACTIONS (4)
  - CEREBROVASCULAR ACCIDENT [None]
  - COGNITIVE DISORDER [None]
  - TACHYCARDIA [None]
  - THROMBOPHLEBITIS SUPERFICIAL [None]
